FAERS Safety Report 9179428 (Version 1)
Quarter: 2012Q4

REPORT INFORMATION
  Report Type: 
  Country: US (occurrence: US)
  Receive Date: 20121029
  Receipt Date: 20121029
  Transmission Date: 20130627
  Serious: Yes (Other)
  Sender: FDA-Public Use
  Company Number: US-ASTELLAS-2012US010164

PATIENT
  Age: 3 None
  Sex: Female

DRUGS (2)
  1. PROTOPIC [Suspect]
     Indication: ECZEMA
     Dosage: 0.03 %, bid
     Route: 061
     Dates: start: 20120916
  2. MOMETASONE FUROATE [Suspect]
     Indication: ECZEMA
     Dosage: UNK
     Route: 061
     Dates: start: 20120916

REACTIONS (4)
  - Skin exfoliation [Unknown]
  - Skin swelling [Not Recovered/Not Resolved]
  - Rash [Unknown]
  - Application site swelling [Not Recovered/Not Resolved]
